FAERS Safety Report 5979615-5 (Version None)
Quarter: 2008Q4

REPORT INFORMATION
  Report Type: 
  Country: None (occurrence: None)
  Receive Date: 20081204
  Receipt Date: 20081203
  Transmission Date: 20090506
  Serious: Yes (Death)
  Sender: FDA-Public Use
  Company Number: US-GILEAD-2008-0018213

PATIENT
  Sex: Male
  Weight: 97.61 kg

DRUGS (16)
  1. LETAIRIS [Suspect]
     Indication: PULMONARY ARTERIAL HYPERTENSION
     Route: 048
     Dates: start: 20070815
  2. ADVAIR DISKUS 100/50 [Concomitant]
     Dosage: 250/50
  3. ALBUTEROL [Concomitant]
  4. SPIRIVA [Concomitant]
  5. IPRATROPIUM BROMIDE [Concomitant]
  6. LASIX [Concomitant]
     Route: 048
  7. PREDNISONE TAB [Concomitant]
     Route: 048
  8. ENALAPRIL MALEATE [Concomitant]
     Route: 048
  9. IMURAN [Concomitant]
     Route: 048
  10. HYDROCORTISONE LOTION [Concomitant]
  11. INDOMETHACIN [Concomitant]
     Route: 048
  12. TESSALON [Concomitant]
     Route: 048
  13. AMBIEN [Concomitant]
     Route: 048
  14. CLARITIN [Concomitant]
     Route: 048
  15. QUININE SULFATE POWDER [Concomitant]
  16. MUCINEX [Concomitant]
     Route: 048

REACTIONS (2)
  - PNEUMONIA [None]
  - RESPIRATORY FAILURE [None]
